FAERS Safety Report 14661077 (Version 2)
Quarter: 2018Q2

REPORT INFORMATION
  Report Type: Spontaneous
  Country: US (occurrence: US)
  Receive Date: 20180320
  Receipt Date: 20180419
  Transmission Date: 20180711
  Serious: Yes (Other)
  Sender: FDA-Public Use
  Company Number: US-TEVA-2018-US-871542

PATIENT

DRUGS (1)
  1. COPAXONE [Suspect]
     Active Substance: GLATIRAMER ACETATE
     Indication: MULTIPLE SCLEROSIS
     Dosage: 20 MG/40 MG
     Dates: start: 201111, end: 201611

REACTIONS (3)
  - Multiple sclerosis [Unknown]
  - Injection site atrophy [Not Recovered/Not Resolved]
  - Injection site pain [Unknown]
